FAERS Safety Report 7705545-4 (Version None)
Quarter: 2011Q3

REPORT INFORMATION
  Report Type: 
  Country: None (occurrence: None)
  Receive Date: 20110818
  Receipt Date: 20110809
  Transmission Date: 20111222
  Serious: Yes (Other)
  Sender: FDA-Public Use
  Company Number: 201107058

PATIENT
  Age: 63 Year
  Sex: Male

DRUGS (9)
  1. GLIPIZIDE [Concomitant]
  2. ASCORBIC ACID [Concomitant]
  3. REGLAN [Concomitant]
  4. IRON(IRON) [Concomitant]
  5. COUMADIN [Concomitant]
  6. VITAMIN D [Concomitant]
  7. LEVOTHYROXINE SODIUM [Concomitant]
  8. CELEXA [Concomitant]
  9. XIAFLEX [Suspect]
     Indication: DUPUYTREN'S CONTRACTURE
     Dosage: 0.58 MG, 1 IN 1 D, INTRALESIONAL
     Route: 026
     Dates: start: 20110725, end: 20110725

REACTIONS (5)
  - SKIN GRAFT [None]
  - CONTUSION [None]
  - LACERATION [None]
  - PROCEDURAL COMPLICATION [None]
  - OEDEMA PERIPHERAL [None]
